FAERS Safety Report 6954033-1 (Version None)
Quarter: 2010Q3

REPORT INFORMATION
  Report Type: 
  Country: None (occurrence: None)
  Receive Date: 20100829
  Receipt Date: 20100702
  Transmission Date: 20110219
  Serious: No
  Sender: FDA-Public Use
  Company Number: US-ABBOTT-10P-163-0655334-00

PATIENT
  Sex: Male
  Weight: 74.91 kg

DRUGS (14)
  1. NIASPAN [Suspect]
     Indication: HIGH DENSITY LIPOPROTEIN DECREASED
     Dosage: 500 MG DAILY AT BEDTIME
     Dates: start: 20100601
  2. NIASPAN [Suspect]
     Indication: LOW DENSITY LIPOPROTEIN INCREASED
  3. VITAMIN E+C [Concomitant]
     Indication: PRODUCT USED FOR UNKNOWN INDICATION
  4. FOLIC ACID [Concomitant]
     Indication: PRODUCT USED FOR UNKNOWN INDICATION
  5. METOPROLOL TARTRATE [Concomitant]
     Indication: PRODUCT USED FOR UNKNOWN INDICATION
  6. NIFEDIAC [Concomitant]
     Indication: PRODUCT USED FOR UNKNOWN INDICATION
  7. OMEPRAZOLE [Concomitant]
     Indication: PRODUCT USED FOR UNKNOWN INDICATION
  8. FISH OIL OTC [Concomitant]
     Indication: PRODUCT USED FOR UNKNOWN INDICATION
  9. FIBER [Concomitant]
     Indication: PRODUCT USED FOR UNKNOWN INDICATION
  10. RAPID FLOW [Concomitant]
     Indication: PRODUCT USED FOR UNKNOWN INDICATION
  11. PROSTATE [Concomitant]
     Indication: PRODUCT USED FOR UNKNOWN INDICATION
  12. SINGULAIR [Concomitant]
     Indication: PRODUCT USED FOR UNKNOWN INDICATION
  13. CETIRIZINE HYDROCHLORIDE [Concomitant]
     Indication: PRODUCT USED FOR UNKNOWN INDICATION
  14. PULMICORT [Concomitant]
     Indication: PRODUCT USED FOR UNKNOWN INDICATION

REACTIONS (2)
  - FEELING HOT [None]
  - PARAESTHESIA [None]
